FAERS Safety Report 10009992 (Version 2)
Quarter: 2014Q1

REPORT INFORMATION
  Report Type: Spontaneous
  Country: US (occurrence: US)
  Receive Date: 20140312
  Receipt Date: 20140312
  Transmission Date: 20141002
  Serious: No
  Sender: FDA-Public Use
  Company Number: US-INCYTE CORPORATION-2013IN000883

PATIENT
  Age: 73 Year
  Sex: Male

DRUGS (4)
  1. JAKAFI [Suspect]
     Indication: MYELOFIBROSIS
     Dosage: 20 MG, BID
     Route: 048
  2. AMLODIPINE [Concomitant]
  3. METOPROLOL [Concomitant]
  4. NIASPAN [Concomitant]

REACTIONS (2)
  - Chills [Unknown]
  - Body temperature decreased [Unknown]
